FAERS Safety Report 23124183 (Version 1)
Quarter: 2023Q4

REPORT INFORMATION
  Report Type: Spontaneous
  Country: US (occurrence: None)
  Receive Date: 20231027
  Receipt Date: 20231027
  Transmission Date: 20240109
  Serious: No
  Sender: FDA-Public Use
  Company Number: None

PATIENT
  Age: 53 Year
  Sex: Male

DRUGS (1)
  1. HALOPERIDOL DECANOATE [Suspect]
     Active Substance: HALOPERIDOL DECANOATE
     Indication: Bipolar disorder
     Dosage: OTHER FREQUENCY : ONCE;?
     Route: 030
     Dates: end: 20230802

REACTIONS (10)
  - Drooling [None]
  - Polymyalgia rheumatica [None]
  - Muscle rigidity [None]
  - Tremor [None]
  - Tachycardia [None]
  - Tachypnoea [None]
  - Jaw disorder [None]
  - Sepsis [None]
  - Pneumonia aspiration [None]
  - Extrapyramidal disorder [None]
